FAERS Safety Report 9163254 (Version 1)
Quarter: 2013Q1

REPORT INFORMATION
  Report Type: Spontaneous
  Country: GB (occurrence: GB)
  Receive Date: 20130314
  Receipt Date: 20130314
  Transmission Date: 20140127
  Serious: Yes (Hospitalization)
  Sender: FDA-Public Use
  Company Number: GB-GLAXOSMITHKLINE-B0872839A

PATIENT
  Age: 45 Year
  Sex: Male

DRUGS (3)
  1. PAROXETINE [Suspect]
     Route: 065
  2. CLOZARIL [Suspect]
     Indication: SCHIZOPHRENIA
     Route: 048
     Dates: start: 19960107
  3. DIAZEPAM [Suspect]
     Route: 065

REACTIONS (3)
  - Blood pressure fluctuation [Unknown]
  - Pulse abnormal [Unknown]
  - Overdose [Unknown]
